FAERS Safety Report 16824600 (Version 2)
Quarter: 2019Q3

REPORT INFORMATION
  Report Type: Spontaneous
  Country: BR (occurrence: BR)
  Receive Date: 20190918
  Receipt Date: 20190930
  Transmission Date: 20191005
  Serious: Yes (Death)
  Sender: FDA-Public Use
  Company Number: BR-BIOMARINAP-BR-2019-125800

PATIENT

DRUGS (1)
  1. NAGLAZYME [Suspect]
     Active Substance: GALSULFASE
     Indication: MUCOPOLYSACCHARIDOSIS VI
     Dosage: UNK
     Route: 065
     Dates: start: 20110628

REACTIONS (4)
  - Gastrostomy [Unknown]
  - Cardiac arrest [Fatal]
  - Post procedural complication [Unknown]
  - Hernia [Unknown]

NARRATIVE: CASE EVENT DATE: 20190828
